FAERS Safety Report 6409051-9 (Version None)
Quarter: 2009Q4

REPORT INFORMATION
  Report Type: 
  Country: None (occurrence: None)
  Receive Date: 20091019
  Receipt Date: 20091019
  Transmission Date: 20100525
  Serious: Yes (Other)
  Sender: FDA-Public Use
  Company Number: None

PATIENT
  Sex: Male
  Weight: 47.6277 kg

DRUGS (1)
  1. BUPROPION HCL [Suspect]
     Indication: MIGRAINE
     Dosage: 150MG PO BID
     Route: 048
     Dates: start: 20091005, end: 20091013

REACTIONS (2)
  - RASH ERYTHEMATOUS [None]
  - RASH MACULO-PAPULAR [None]
